FAERS Safety Report 14175987 (Version 1)
Quarter: 2017Q4

REPORT INFORMATION
  Report Type: Spontaneous
  Country: US (occurrence: None)
  Receive Date: 20171109
  Receipt Date: 20171109
  Transmission Date: 20180321
  Serious: Yes (Hospitalization)
  Sender: FDA-Public Use
  Company Number: None

PATIENT
  Sex: Female

DRUGS (1)
  1. COSENTYX [Suspect]
     Active Substance: SECUKINUMAB
     Dosage: 300MG EVERY 4 WEEKS SUBCUTANEOUSLY
     Route: 058
     Dates: start: 20170417

REACTIONS (2)
  - Post procedural infection [None]
  - Paraganglion neoplasm [None]
